FAERS Safety Report 22651816 (Version 1)
Quarter: 2023Q2

REPORT INFORMATION
  Report Type: Spontaneous
  Country: US (occurrence: US)
  Receive Date: 20230628
  Receipt Date: 20230628
  Transmission Date: 20230722
  Serious: No
  Sender: FDA-Public Use
  Company Number: US-CTI BIOPHARMA-2023US03624

PATIENT

DRUGS (7)
  1. VONJO [Suspect]
     Active Substance: PACRITINIB
     Indication: Myelofibrosis
     Dosage: 200 MG, BID (MORNING)
     Route: 048
     Dates: start: 20221215
  2. VONJO [Suspect]
     Active Substance: PACRITINIB
     Dosage: 100 MG, BID (EVENING)
     Route: 048
     Dates: start: 20221215
  3. ALLOPURINOL [Concomitant]
     Active Substance: ALLOPURINOL
  4. FOLIC ACID [Concomitant]
     Active Substance: FOLIC ACID
  5. VITAMINS NOS [Concomitant]
     Active Substance: VITAMINS
  6. VITAMIN B12 [Concomitant]
     Active Substance: CYANOCOBALAMIN
  7. VITAMIN B6 [Concomitant]
     Active Substance: PYRIDOXINE HYDROCHLORIDE

REACTIONS (4)
  - Transfusion [Unknown]
  - Product dose omission issue [Unknown]
  - Memory impairment [Unknown]
  - Diarrhoea [Unknown]
